FAERS Safety Report 18279215 (Version 2)
Quarter: 2020Q4

REPORT INFORMATION
  Report Type: Spontaneous
  Country: JP (occurrence: JP)
  Receive Date: 20200917
  Receipt Date: 20201223
  Transmission Date: 20210113
  Serious: Yes (Death, Other)
  Sender: FDA-Public Use
  Company Number: JP-PFIZER INC-2020356405

PATIENT
  Age: 9 Decade
  Sex: Male
  Weight: 69 kg

DRUGS (1)
  1. SILDENAFIL CITRATE. [Suspect]
     Active Substance: SILDENAFIL CITRATE
     Dosage: UNK

REACTIONS (5)
  - Aspiration [Fatal]
  - Altered state of consciousness [Unknown]
  - Blood pressure decreased [Unknown]
  - Prescription drug used without a prescription [Fatal]
  - Asphyxia [Fatal]
